FAERS Safety Report 18958252 (Version 1)
Quarter: 2021Q1

REPORT INFORMATION
  Report Type: Spontaneous
  Country: BE (occurrence: BE)
  Receive Date: 20210302
  Receipt Date: 20210302
  Transmission Date: 20210420
  Serious: Yes (Other)
  Sender: FDA-Public Use
  Company Number: NVSC2020BE340060

PATIENT
  Age: 63 Year
  Sex: Female
  Weight: 75.5 kg

DRUGS (12)
  1. PULMICORT TURBUHALER [Suspect]
     Active Substance: BUDESONIDE
     Indication: ASTHMA
  2. PANTOMED [Concomitant]
     Indication: GASTRIC DISORDER
     Dosage: 1 DF, QD (TAKEN IN THE MORNING SOBERLY)
     Route: 065
  3. LIPANTHYLNANO [Concomitant]
     Active Substance: FENOFIBRATE
     Indication: HYPERCHOLESTEROLAEMIA
     Dosage: UNK(TAKEN IN THE EVENING)
     Route: 065
  4. ZOCOR [Interacting]
     Active Substance: SIMVASTATIN
     Indication: HYPERCHOLESTEROLAEMIA
     Dosage: 1 DF, QD(TAKEN IN THE EVENING, ABOUT 5 YEAR)
     Route: 048
  5. PULMICORT TURBUHALER [Suspect]
     Active Substance: BUDESONIDE
     Indication: BRONCHITIS
     Dosage: 1 DF, QD (200 MICROGRAM/ DOSIS, ABOUT 3 YEARS AGO)
     Route: 048
     Dates: start: 201604
  6. BELLOZAL [Suspect]
     Active Substance: BILASTINE
     Indication: PRODUCT USED FOR UNKNOWN INDICATION
     Dosage: 1 DF, QD (ABOUT 5 ? 7 YEARS AGO)
     Route: 048
     Dates: start: 2017
  7. ZALDIAR [Concomitant]
     Active Substance: ACETAMINOPHEN\TRAMADOL HYDROCHLORIDE
     Indication: PAIN
     Dosage: 1 DF (UP TO 3 PER DAY, 37.5 MG /325 MG   )
     Route: 065
  8. PARACETAMOL [Concomitant]
     Active Substance: ACETAMINOPHEN
     Indication: PAIN
     Dosage: 1 DF (UP TO 3 PER DAY)
     Route: 065
  9. OXYCONTIN [Suspect]
     Active Substance: OXYCODONE HYDROCHLORIDE
     Indication: PAIN
     Dosage: 2 DF, QD (ABOUT 5 YEARS AGO)
     Route: 048
     Dates: start: 20170507, end: 20170510
  10. BROMAZEPAM EG [Concomitant]
     Indication: PRODUCT USED FOR UNKNOWN INDICATION
     Dosage: 1 DF, QD (ABOUT 5 YEAR,TAKEN IN THE EVENING)
     Route: 048
  11. LODIXAL [Concomitant]
     Active Substance: VERAPAMIL HYDROCHLORIDE
     Indication: CARDIOVASCULAR DISORDER
     Dosage: 0.5 DF, QD (TAKEN IN THE MORNING)
     Route: 065
  12. CETIRIZINE [Suspect]
     Active Substance: CETIRIZINE HYDROCHLORIDE
     Indication: SEASONAL ALLERGY
     Dosage: 20 MG, QD (ABOUT 5 YEAR)
     Route: 048
     Dates: start: 201704

REACTIONS (15)
  - Hypertension [Unknown]
  - Blood pressure decreased [Recovered/Resolved]
  - Blood pressure increased [Recovered/Resolved]
  - Headache [Recovered/Resolved]
  - Arrhythmia [Recovered/Resolved]
  - Myalgia [Recovered/Resolved]
  - Gait disturbance [Unknown]
  - Vomiting [Recovered/Resolved]
  - Dizziness [Unknown]
  - Rash erythematous [Recovered/Resolved]
  - Loss of consciousness [Recovered/Resolved]
  - Arthralgia [Recovered/Resolved]
  - Swelling [Recovered/Resolved]
  - Dyspnoea [Recovered/Resolved]
  - Nausea [Recovered/Resolved]
